FAERS Safety Report 25499425 (Version 1)
Quarter: 2025Q3

REPORT INFORMATION
  Report Type: Spontaneous
  Country: EU (occurrence: EU)
  Receive Date: 20250701
  Receipt Date: 20250701
  Transmission Date: 20251021
  Serious: Yes (Other)
  Sender: COSETTE PHARMACEUTICALS INC
  Company Number: None

PATIENT
  Age: 23 Year
  Sex: Male

DRUGS (6)
  1. AMBIEN [Suspect]
     Active Substance: ZOLPIDEM TARTRATE
     Indication: Product used for unknown indication
     Dosage: 1 DF = 1 TABLET
     Route: 048
     Dates: start: 20250506, end: 20250506
  2. AMBIEN [Suspect]
     Active Substance: ZOLPIDEM TARTRATE
  3. AMISULPRIDE [Suspect]
     Active Substance: AMISULPRIDE
     Indication: Product used for unknown indication
     Route: 048
     Dates: start: 20250506, end: 20250506
  4. AMISULPRIDE [Suspect]
     Active Substance: AMISULPRIDE
  5. PROMAZINE [Suspect]
     Active Substance: PROMAZINE
     Indication: Product used for unknown indication
     Dosage: 1 DF EQUAL TO 1 TABLET
     Route: 048
     Dates: start: 20250506, end: 20250506
  6. PROMAZINE [Suspect]
     Active Substance: PROMAZINE

REACTIONS (4)
  - Sluggishness [Unknown]
  - Suicide attempt [Unknown]
  - Somnolence [Unknown]
  - Intentional overdose [Unknown]

NARRATIVE: CASE EVENT DATE: 20250506
